FAERS Safety Report 11799409 (Version 4)
Quarter: 2016Q3

REPORT INFORMATION
  Report Type: Report from Study
  Country: US (occurrence: US)
  Receive Date: 20151203
  Receipt Date: 20160722
  Transmission Date: 20161109
  Serious: No
  Sender: FDA-Public Use
  Company Number: US-AMGEN-USASL2015126785

PATIENT
  Age: 62 Year
  Sex: Male
  Weight: 119.27 kg

DRUGS (11)
  1. HCTZ [Concomitant]
     Active Substance: HYDROCHLOROTHIAZIDE
     Indication: HYPERTENSION
     Dosage: 25 MG, QD
     Route: 048
     Dates: start: 201002
  2. BENICAR [Concomitant]
     Active Substance: OLMESARTAN MEDOXOMIL
     Indication: HYPERTENSION
     Dosage: 40 MG, QD
     Route: 048
     Dates: start: 201509
  3. OMEPRAZOLE. [Concomitant]
     Active Substance: OMEPRAZOLE
     Indication: GASTROOESOPHAGEAL REFLUX DISEASE
     Dosage: 40 MG, QD
     Route: 048
     Dates: start: 201002
  4. REPATHA [Suspect]
     Active Substance: EVOLOCUMAB
     Indication: HYPERCHOLESTEROLAEMIA
     Dosage: 140 MG/ML, Q2WK
     Route: 058
     Dates: start: 20151119
  5. COLESEVELAM [Concomitant]
     Active Substance: COLESEVELAM
     Indication: HYPERLIPIDAEMIA
     Dosage: 7.5 G, QD
     Route: 048
     Dates: start: 201309
  6. NITROGLYCERINE [Concomitant]
     Active Substance: NITROGLYCERIN
     Indication: CHEST PAIN
     Dosage: 0.4 MG, AS NECESSARY
     Route: 060
     Dates: start: 201002
  7. REPATHA [Suspect]
     Active Substance: EVOLOCUMAB
     Indication: ARTERIOSCLEROSIS
  8. ASPIRIN                            /00002701/ [Concomitant]
     Active Substance: ASPIRIN
     Indication: CORONARY ARTERY DISEASE
     Dosage: 81 MG, QD
     Route: 048
     Dates: start: 201002
  9. VITAMIN D                          /00107901/ [Concomitant]
     Active Substance: ERGOCALCIFEROL
     Dosage: 1000 IU, QD
     Route: 048
     Dates: start: 201002
  10. ATORVASTATIN [Concomitant]
     Active Substance: ATORVASTATIN
     Indication: HYPERLIPIDAEMIA
     Dosage: 80 MG, QHS
     Route: 048
     Dates: start: 201002
  11. METOPROLOL TARTRATE. [Concomitant]
     Active Substance: METOPROLOL TARTRATE
     Indication: CORONARY ARTERY DISEASE
     Dosage: 100 MG, BID
     Route: 048
     Dates: start: 201002

REACTIONS (6)
  - Drug hypersensitivity [Recovering/Resolving]
  - Dysgeusia [Not Recovered/Not Resolved]
  - Dyspnoea [Recovering/Resolving]
  - Fatigue [Recovered/Resolved]
  - Off label use [Unknown]
  - Low density lipoprotein decreased [Not Recovered/Not Resolved]

NARRATIVE: CASE EVENT DATE: 2015
